FAERS Safety Report 12099818 (Version 1)
Quarter: 2016Q1

REPORT INFORMATION
  Report Type: Spontaneous
  Country: FR (occurrence: FR)
  Receive Date: 20160222
  Receipt Date: 20160222
  Transmission Date: 20160526
  Serious: Yes (Hospitalization)
  Sender: FDA-Public Use
  Company Number: FR-AUROBINDO-AUR-APL-2016-01754

PATIENT
  Age: 62 Year
  Sex: Female

DRUGS (2)
  1. AMOXICILLIN ARROW [Suspect]
     Active Substance: AMOXICILLIN
     Indication: PRODUCT USED FOR UNKNOWN INDICATION
     Dosage: 1 G, 3 TIMES A DAY
     Route: 048
     Dates: start: 20160113, end: 20160114
  2. AMOXICILLIN/CLAVULANIC ACID [Suspect]
     Active Substance: AMOXICILLIN\CLAVULANIC ACID
     Indication: PRODUCT USED FOR UNKNOWN INDICATION
     Dosage: 2 G, 3 TIMES A DAY
     Route: 048
     Dates: start: 20160106, end: 20160112

REACTIONS (3)
  - Crystalluria [Recovered/Resolved]
  - Acute kidney injury [Recovered/Resolved]
  - Nephropathy [Recovered/Resolved]

NARRATIVE: CASE EVENT DATE: 20160112
